FAERS Safety Report 7349039-7 (Version None)
Quarter: 2011Q1

REPORT INFORMATION
  Report Type: 
  Country: None (occurrence: None)
  Receive Date: 20110314
  Receipt Date: 20091031
  Transmission Date: 20110831
  Serious: Yes (Hospitalization, Other)
  Sender: FDA-Public Use
  Company Number: US-BAYER-200937836NA

PATIENT
  Sex: Male
  Weight: 92.971 kg

DRUGS (31)
  1. ASPIRIN [Concomitant]
     Dosage: UNK
     Route: 048
     Dates: start: 20050703
  2. PEPCID [Concomitant]
     Dosage: 20 MG, BID
     Route: 048
     Dates: start: 20050704
  3. SUCCINYLCHOLINE CHLORIDE [Concomitant]
     Dosage: 100 MG, UNK
     Route: 042
     Dates: start: 20050707, end: 20050707
  4. LOVENOX [Concomitant]
     Dosage: 100 MG, UNK
     Route: 058
     Dates: start: 20050703, end: 20050704
  5. RESTORIL [Concomitant]
     Dosage: 15 MG, PRN
     Route: 048
     Dates: start: 20050704, end: 20050711
  6. VERSED [Concomitant]
     Indication: SEDATION
     Dosage: 2 MG, UNK
     Dates: start: 20050704, end: 20050704
  7. FENTANYL [Concomitant]
     Indication: ANXIETY
     Dosage: UNK
     Route: 042
     Dates: start: 20050707, end: 20050707
  8. TYLENOL W/ CODEINE NO. 3 [Concomitant]
     Dosage: 1000 MG, Q4HR
     Route: 048
     Dates: start: 20050704
  9. METOPROLOL [Concomitant]
     Dosage: 50 MG, BID
     Route: 048
     Dates: start: 20050704, end: 20050709
  10. ZEMURON [Concomitant]
     Dosage: 150 MG, UNK
     Route: 042
     Dates: start: 20050707, end: 20050707
  11. FENTANYL [Concomitant]
     Indication: SEDATION
     Dosage: 100 UNK, UNK
     Route: 042
     Dates: start: 20050704, end: 20050704
  12. HEPARIN [Concomitant]
     Dosage: UNK
     Route: 058
     Dates: start: 20050704, end: 20050709
  13. ALBUMIN (HUMAN) [Concomitant]
     Dosage: 100 ML, UNK
     Route: 042
     Dates: start: 20050707, end: 20050707
  14. CARDIOPLEGIA [Concomitant]
     Dosage: UNK
     Route: 022
     Dates: start: 20050707, end: 20050707
  15. NITROGLYCERIN [Concomitant]
     Dosage: 1 UNK, UNK
     Route: 061
     Dates: start: 20050703
  16. LOVENOX [Concomitant]
     Dosage: 90 MG
     Route: 058
  17. NITROGLYCERIN [Concomitant]
     Dosage: UNK
     Route: 042
     Dates: start: 20050707
  18. TRASYLOL [Suspect]
     Indication: CORONARY ARTERY BYPASS
     Dosage: UNK
     Route: 042
     Dates: start: 20050707, end: 20050707
  19. CEFAZOLIN [Concomitant]
     Dosage: UNK G, UNK
     Route: 042
     Dates: start: 20050707, end: 20050707
  20. PEPCID [Concomitant]
     Dosage: 20 UNK, UNK
     Route: 042
     Dates: start: 20050707, end: 20050707
  21. PLAVIX [Concomitant]
     Dosage: 750 MG, ONCE
     Route: 048
     Dates: start: 20050704, end: 20050704
  22. MIDAZOLAM [Concomitant]
     Dosage: 21 MG, UNK
     Route: 042
     Dates: start: 20050707, end: 20050707
  23. NORMAL SALINE [Concomitant]
     Dosage: 3000 UNK, UNK
     Route: 042
     Dates: start: 20050707, end: 20050707
  24. VERSED [Concomitant]
     Indication: ANXIETY
  25. VALIUM [Concomitant]
     Dosage: 5 MG, PRN
     Dates: start: 20050704, end: 20050711
  26. DOPAMINE [Concomitant]
     Dosage: UNK
     Route: 042
     Dates: start: 20050707
  27. BENADRYL [Concomitant]
     Dosage: 50 UNK, UNK
     Route: 042
     Dates: start: 20050707, end: 20050707
  28. HESPAN IN EXCEL PLASTIC CONTAINER [Concomitant]
     Dosage: 500 UNK, UNK
     Route: 042
     Dates: start: 20050707, end: 20050707
  29. HEPARIN [Concomitant]
     Dosage: UNK
     Route: 016
     Dates: start: 20050707, end: 20050707
  30. LIPITOR [Concomitant]
     Dosage: 40 MG, HS
     Route: 048
     Dates: start: 20050705
  31. PROTAMINE SULFATE [Concomitant]
     Dosage: UNK
     Route: 016
     Dates: start: 20050707, end: 20050707

REACTIONS (14)
  - UNEVALUABLE EVENT [None]
  - ANHEDONIA [None]
  - FEAR [None]
  - RENAL IMPAIRMENT [None]
  - CEREBROVASCULAR ACCIDENT [None]
  - RENAL INJURY [None]
  - BLINDNESS UNILATERAL [None]
  - RENAL FAILURE [None]
  - PAIN [None]
  - INJURY [None]
  - EMOTIONAL DISTRESS [None]
  - STRESS [None]
  - MULTI-ORGAN FAILURE [None]
  - ANXIETY [None]
